FAERS Safety Report 5628160-5 (Version None)
Quarter: 2008Q1

REPORT INFORMATION
  Report Type: 
  Country: None (occurrence: None)
  Receive Date: 20080215
  Receipt Date: 20080211
  Transmission Date: 20080703
  Serious: Yes (Other)
  Sender: FDA-Public Use
  Company Number: US-JNJFOC-20080203153

PATIENT
  Sex: Male
  Weight: 40.37 kg

DRUGS (2)
  1. CONCERTA [Suspect]
     Indication: ATTENTION DEFICIT/HYPERACTIVITY DISORDER
     Route: 048
  2. DITROPAN XL [Suspect]
     Indication: ENURESIS

REACTIONS (1)
  - HYPERTENSION [None]
